FAERS Safety Report 21000957 (Version 2)
Quarter: 2022Q3

REPORT INFORMATION
  Report Type: Spontaneous
  Country: US (occurrence: US)
  Receive Date: 20220624
  Receipt Date: 20220711
  Transmission Date: 20221026
  Serious: Yes (Death, Hospitalization, Other)
  Sender: FDA-Public Use
  Company Number: US-TEVA-2022-US-2047663

PATIENT
  Age: 8 Decade
  Sex: Male

DRUGS (15)
  1. LEUCOVORIN [Suspect]
     Active Substance: LEUCOVORIN
     Indication: Oesophageal adenocarcinoma
     Dosage: FOLFOX REGIMEN; THE FIRST LINE TREATMENT
     Route: 065
  2. LEUCOVORIN [Suspect]
     Active Substance: LEUCOVORIN
     Indication: Metastases to lymph nodes
  3. FLUOROURACIL [Suspect]
     Active Substance: FLUOROURACIL
     Indication: Oesophageal adenocarcinoma
     Dosage: FOLFOX REGIMEN; THE FIRST LINE TREATMENT
     Route: 065
  4. FLUOROURACIL [Suspect]
     Active Substance: FLUOROURACIL
     Indication: Metastases to lymph nodes
  5. OXALIPLATIN [Suspect]
     Active Substance: OXALIPLATIN
     Indication: Oesophageal adenocarcinoma
     Dosage: FOLFOX REGIMEN; THE FIRST LINE TREATMENT
     Route: 065
  6. OXALIPLATIN [Suspect]
     Active Substance: OXALIPLATIN
     Indication: Metastases to lymph nodes
  7. PACLITAXEL [Suspect]
     Active Substance: PACLITAXEL
     Indication: Oesophageal adenocarcinoma
     Dosage: SECOND-LINE THERAPY
     Route: 065
  8. PACLITAXEL [Suspect]
     Active Substance: PACLITAXEL
     Indication: Metastases to lymph nodes
  9. LEVETIRACETAM [Suspect]
     Active Substance: LEVETIRACETAM
     Indication: Seizure
     Route: 065
  10. LEVETIRACETAM [Suspect]
     Active Substance: LEVETIRACETAM
     Dosage: 2000 MILLIGRAM DAILY; DOSE TAPERED LATER
     Route: 065
  11. RAMUCIRUMAB [Suspect]
     Active Substance: RAMUCIRUMAB
     Indication: Oesophageal adenocarcinoma
     Dosage: SECOND-LINE THERAPY
     Route: 065
  12. RAMUCIRUMAB [Suspect]
     Active Substance: RAMUCIRUMAB
     Indication: Metastases to lymph nodes
  13. PEMBROLIZUMAB [Suspect]
     Active Substance: PEMBROLIZUMAB
     Indication: Oesophageal adenocarcinoma
     Dosage: THE THIRD-LINE THERAPY
     Route: 065
  14. PEMBROLIZUMAB [Suspect]
     Active Substance: PEMBROLIZUMAB
     Indication: Metastases to lymph nodes
  15. PREDNISONE [Concomitant]
     Active Substance: PREDNISONE
     Indication: Symptomatic treatment
     Route: 065

REACTIONS (4)
  - Cognitive disorder [Fatal]
  - Limbic encephalitis [Unknown]
  - Drug ineffective [Unknown]
  - Seizure [Unknown]
